FAERS Safety Report 19022261 (Version 1)
Quarter: 2021Q1

REPORT INFORMATION
  Report Type: Other
  Country: US (occurrence: US)
  Receive Date: 20210318
  Receipt Date: 20210318
  Transmission Date: 20210420
  Serious: Yes (Hospitalization)
  Sender: FDA-Public Use
  Company Number: US-ROCHE-2789793

PATIENT
  Age: 33 Year
  Sex: Female
  Weight: 90.8 kg

DRUGS (1)
  1. OCREVUS [Suspect]
     Active Substance: OCRELIZUMAB
     Indication: RELAPSING MULTIPLE SCLEROSIS
     Dosage: ONGOING YES?DATES OF TREATMENT : 06/MAR/2019, 21/MAR/2019, 21/SEP/2019, 06/MAR/2020, 08/SEP/2020, 26
     Route: 042
     Dates: start: 20190306

REACTIONS (5)
  - COVID-19 [Not Recovered/Not Resolved]
  - Alopecia [Not Recovered/Not Resolved]
  - Pain [Recovered/Resolved]
  - Dry skin [Not Recovered/Not Resolved]
  - Memory impairment [Not Recovered/Not Resolved]

NARRATIVE: CASE EVENT DATE: 20201207
